FAERS Safety Report 5031710-3 (Version None)
Quarter: 2006Q2

REPORT INFORMATION
  Report Type: 
  Country: None (occurrence: None)
  Receive Date: 20060616
  Receipt Date: 20060530
  Transmission Date: 20061013
  Serious: Yes (Other)
  Sender: FDA-Public Use
  Company Number: US200512000404

PATIENT
  Sex: Female
  Weight: 148 kg

DRUGS (2)
  1. HUMATROPE [Suspect]
     Indication: POSTPARTUM HYPOPITUITARISM
     Dosage: 0.3 MG, DAILY (1/D)
  2. SYNTHROID [Concomitant]

REACTIONS (4)
  - ACOUSTIC NEUROMA [None]
  - BLOOD PROLACTIN INCREASED [None]
  - DEAFNESS [None]
  - THYROXINE FREE DECREASED [None]
